FAERS Safety Report 9421151 (Version 1)
Quarter: 2013Q3

REPORT INFORMATION
  Report Type: Spontaneous
  Country: GB (occurrence: GB)
  Receive Date: 20130725
  Receipt Date: 20130725
  Transmission Date: 20140515
  Serious: Yes (Disabling)
  Sender: FDA-Public Use
  Company Number: PHHY2013GB077000

PATIENT
  Age: 48 Year
  Sex: Male

DRUGS (10)
  1. TRAMADOL [Suspect]
     Dosage: 800MG DAILY TO REDUCE TO {400MG DAILY. TRIED TO REDUCE AS WAS ON 800MG DAILY. STILL ON 400MG DAILY
     Route: 048
  2. TRAMADOL [Suspect]
     Dosage: 800MG DAILY TO REDUCE TO {400MG DAILY. TRIED TO REDUCE AS WAS ON 800MG DAILY. STILL ON 400MG DAILY
     Route: 048
  3. WARFARIN [Concomitant]
     Dosage: AS DIRECTED PER INTERNATIONAL NORMALISED RATIO. PRESCRIBED LONG TERM
     Route: 048
  4. GABAPENTIN [Concomitant]
     Dosage: 3.6 G, QD LONG TERM
     Route: 048
  5. LANSOPRAZOLE [Concomitant]
     Dosage: 30 MG, QD LONG TERM
     Route: 048
  6. PROPRANOLOL [Concomitant]
     Dosage: 1 OT, LONG TERM
     Route: 048
  7. PREDNISOLONE [Concomitant]
     Dosage: 1 OT, LONG TERM
  8. NAPROXEN [Concomitant]
     Dosage: 1 OT, LONG TERM
  9. TIMOLOL [Concomitant]
     Dosage: 1 OT, LONG TERM
  10. BIMATOPROST [Concomitant]
     Dosage: 1 OT, LONG TERM

REACTIONS (2)
  - Bone pain [Recovered/Resolved]
  - Drug withdrawal syndrome [Recovered/Resolved]
